FAERS Safety Report 7624519-5 (Version None)
Quarter: 2011Q3

REPORT INFORMATION
  Report Type: 
  Country: None (occurrence: None)
  Receive Date: 20110720
  Receipt Date: 20110712
  Transmission Date: 20111222
  Serious: Yes (Disabling, Other)
  Sender: FDA-Public Use
  Company Number: US-CEPHALON-2011002839

PATIENT
  Sex: Male
  Weight: 104 kg

DRUGS (6)
  1. LUVOX [Concomitant]
     Dates: start: 19910101
  2. GEMFIBROZIL [Concomitant]
     Dates: start: 20100101
  3. NUVIGIL [Suspect]
     Indication: NARCOLEPSY
     Route: 048
     Dates: start: 20110520
  4. ALLOPURINOL [Concomitant]
     Dates: start: 19910101
  5. LOVAZA [Concomitant]
     Dates: start: 20100101
  6. ABILIFY [Concomitant]
     Dates: start: 20090101

REACTIONS (3)
  - DIZZINESS [None]
  - VISION BLURRED [None]
  - HEADACHE [None]
